FAERS Safety Report 6983467-4 (Version None)
Quarter: 2010Q3

REPORT INFORMATION
  Report Type: 
  Country: None (occurrence: None)
  Receive Date: 20100914
  Receipt Date: 20080522
  Transmission Date: 20110219
  Serious: No
  Sender: FDA-Public Use
  Company Number: US-WYE-H04245908

PATIENT
  Age: 58 Year
  Sex: Male
  Weight: 86.26 kg

DRUGS (3)
  1. ADVIL LIQUI-GELS [Suspect]
     Indication: OSTEOARTHRITIS
     Route: 048
     Dates: start: 20080520, end: 20080520
  2. ACETYLSALICYLIC ACID [Concomitant]
  3. LIPITOR [Concomitant]

REACTIONS (1)
  - NEPHROLITHIASIS [None]
